FAERS Safety Report 6271817-6 (Version None)
Quarter: 2009Q3

REPORT INFORMATION
  Report Type: 
  Country: None (occurrence: None)
  Receive Date: 20090717
  Receipt Date: 20090707
  Transmission Date: 20100115
  Serious: Yes (Hospitalization, Other)
  Sender: FDA-Public Use
  Company Number: US-PFIZER INC-2009238849

PATIENT
  Sex: Male
  Weight: 90.703 kg

DRUGS (2)
  1. CHANTIX [Suspect]
     Indication: SMOKING CESSATION THERAPY
     Dosage: FREQUENCY: 1X/DAY, EVERYDAY;
     Route: 048
     Dates: start: 20090601, end: 20090701
  2. AMLODIPINE BESILATE [Concomitant]
     Indication: HYPERTENSION

REACTIONS (3)
  - FALL [None]
  - FEELING ABNORMAL [None]
  - LOSS OF CONSCIOUSNESS [None]
